FAERS Safety Report 15610864 (Version 1)
Quarter: 2018Q4

REPORT INFORMATION
  Report Type: Spontaneous
  Country: US (occurrence: US)
  Receive Date: 20181113
  Receipt Date: 20181113
  Transmission Date: 20190205
  Serious: No
  Sender: FDA-Public Use
  Company Number: US-ROCHE-2174209

PATIENT
  Sex: Female
  Weight: 56.75 kg

DRUGS (3)
  1. COUMADIN [Concomitant]
     Active Substance: WARFARIN SODIUM
     Indication: ATRIAL FIBRILLATION
     Route: 065
  2. COUMADIN [Concomitant]
     Active Substance: WARFARIN SODIUM
     Dosage: 1.25 MG IN THE AM AND 2.5 MG IN THE PM
     Route: 065
     Dates: start: 2018
  3. LUCENTIS [Suspect]
     Active Substance: RANIBIZUMAB
     Indication: MACULAR DEGENERATION
     Route: 050
     Dates: start: 20180809

REACTIONS (4)
  - Sinus headache [Not Recovered/Not Resolved]
  - Vision blurred [Unknown]
  - Metamorphopsia [Unknown]
  - Visual impairment [Not Recovered/Not Resolved]
